FAERS Safety Report 11791998 (Version 3)
Quarter: 2016Q2

REPORT INFORMATION
  Report Type: Spontaneous
  Country: US (occurrence: US)
  Receive Date: 20151201
  Receipt Date: 20160411
  Transmission Date: 20160815
  Serious: No
  Sender: FDA-Public Use
  Company Number: US-PFIZER INC-2015405072

PATIENT
  Age: 67 Year
  Sex: Female

DRUGS (11)
  1. POTASSIUM [Concomitant]
     Active Substance: POTASSIUM
     Dosage: UNK
  2. COQ10 [Concomitant]
     Active Substance: UBIDECARENONE
     Dosage: UNK
  3. SYNTHROID [Concomitant]
     Active Substance: LEVOTHYROXINE SODIUM
     Dosage: 75 UG, (3X A WEEK)
     Dates: start: 199211
  4. VITAMINS A + D [Concomitant]
     Dosage: UNK
  5. FERRO-SEQUELS [Concomitant]
  6. SYNTHROID [Concomitant]
     Active Substance: LEVOTHYROXINE SODIUM
     Dosage: 87.5 UG, UNK
     Dates: start: 199211
  7. NIFEDIPINE. [Suspect]
     Active Substance: NIFEDIPINE
     Indication: RAYNAUD^S PHENOMENON
     Dosage: (AM)10 MG, 1X/DAY
  8. NIFEDIPINE. [Suspect]
     Active Substance: NIFEDIPINE
     Dosage: 20 MG, 1X/DAY (BED TIME)
  9. CALCIUM + MAGNESIUM + ZINK [Concomitant]
     Dosage: UNK
     Dates: start: 1976
  10. VITAMIN D2 [Concomitant]
     Active Substance: ERGOCALCIFEROL
     Dosage: 1.25 MG, (1 EVERY OTHER WEEK)
     Dates: start: 20130707
  11. DOXYCYCLINE HYCLATE. [Concomitant]
     Active Substance: DOXYCYCLINE HYCLATE
     Dosage: 100 MG, 1X/DAY
     Dates: start: 20130707

REACTIONS (3)
  - Asthma [Unknown]
  - Reaction to drug excipients [Unknown]
  - Drug ineffective for unapproved indication [Unknown]
